FAERS Safety Report 18029673 (Version 1)
Quarter: 2020Q3

REPORT INFORMATION
  Report Type: Spontaneous
  Country: US (occurrence: US)
  Receive Date: 20200715
  Receipt Date: 20200715
  Transmission Date: 20201103
  Serious: No
  Sender: FDA-Public Use
  Company Number: US-BAUSCH-BL-2020-018929

PATIENT
  Age: 68 Year
  Sex: Female

DRUGS (1)
  1. LOTEMAX [Suspect]
     Active Substance: LOTEPREDNOL ETABONATE
     Indication: PRODUCT USED FOR UNKNOWN INDICATION
     Dosage: PRESCRIBED AROUND 2 WEEKS AGO AT 1 DOSE TWICE A DAY INTO BOTH EYES
     Route: 047
     Dates: start: 202006

REACTIONS (5)
  - Accidental overdose [Unknown]
  - Hypoaesthesia eye [Recovering/Resolving]
  - Eye swelling [Not Recovered/Not Resolved]
  - Product physical consistency issue [Unknown]
  - Product delivery mechanism issue [Unknown]

NARRATIVE: CASE EVENT DATE: 202006
